FAERS Safety Report 12839096 (Version 1)
Quarter: 2016Q4

REPORT INFORMATION
  Report Type: Spontaneous
  Country: US (occurrence: US)
  Receive Date: 20161012
  Receipt Date: 20161012
  Transmission Date: 20170207
  Serious: No
  Sender: FDA-Public Use
  Company Number: US-TEVA-673669USA

PATIENT
  Sex: Female

DRUGS (2)
  1. ZECUITY [Suspect]
     Active Substance: SUMATRIPTAN SUCCINATE
     Route: 062
     Dates: start: 2016, end: 2016
  2. ZECUITY [Suspect]
     Active Substance: SUMATRIPTAN SUCCINATE
     Indication: MIGRAINE
     Route: 062

REACTIONS (6)
  - Application site rash [Recovered/Resolved]
  - Application site discolouration [Not Recovered/Not Resolved]
  - Drug effect incomplete [Unknown]
  - Application site inflammation [Recovered/Resolved]
  - Application site erythema [Unknown]
  - Application site bruise [Unknown]

NARRATIVE: CASE EVENT DATE: 2016
